FAERS Safety Report 11089902 (Version 1)
Quarter: 2015Q2

REPORT INFORMATION
  Report Type: Spontaneous
  Country: US (occurrence: None)
  Receive Date: 20150501
  Receipt Date: 20150501
  Transmission Date: 20150821
  Serious: Yes (Hospitalization, Other)
  Sender: FDA-Public Use
  Company Number: ADR-2015-00852

PATIENT
  Age: 14 Year
  Sex: Male

DRUGS (1)
  1. BACLOFEN INTRATHECAL [Suspect]
     Active Substance: BACLOFEN
     Indication: CEREBRAL PALSY

REACTIONS (7)
  - Adverse event [None]
  - Tachycardia [None]
  - Weight increased [None]
  - Pyrexia [None]
  - Pruritus [None]
  - Drug withdrawal syndrome [None]
  - Hypertension [None]

NARRATIVE: CASE EVENT DATE: 20150328
